FAERS Safety Report 9656961 (Version 2)
Quarter: 2013Q4

REPORT INFORMATION
  Report Type: Spontaneous
  Country: US (occurrence: US)
  Receive Date: 20131030
  Receipt Date: 20131109
  Transmission Date: 20140711
  Serious: No
  Sender: FDA-Public Use
  Company Number: US-009507513-1310USA012434

PATIENT
  Sex: Female

DRUGS (1)
  1. PEGINTRON [Suspect]
     Dosage: UNK, REDIPEN

REACTIONS (3)
  - Pneumonia [Unknown]
  - Underdose [Unknown]
  - Product container issue [Unknown]
